FAERS Safety Report 17131243 (Version 1)
Quarter: 2019Q4

REPORT INFORMATION
  Report Type: Spontaneous
  Country: AR (occurrence: AR)
  Receive Date: 20191209
  Receipt Date: 20191209
  Transmission Date: 20200122
  Serious: Yes (Other)
  Sender: FDA-Public Use
  Company Number: AR-AMGEN-ARGSP2019204395

PATIENT
  Age: 51 Year
  Sex: Female

DRUGS (1)
  1. ENBREL [Suspect]
     Active Substance: ETANERCEPT
     Indication: RHEUMATOID ARTHRITIS
     Dosage: 50 MILLIGRAM, QWK
     Route: 065
     Dates: start: 20131001

REACTIONS (6)
  - Sjogren^s syndrome [Unknown]
  - Injection site pain [Unknown]
  - Fibromyalgia [Unknown]
  - Dizziness [Unknown]
  - Device issue [Unknown]
  - Skin injury [Unknown]

NARRATIVE: CASE EVENT DATE: 2015
